FAERS Safety Report 9966091 (Version 1)
Quarter: 2014Q1

REPORT INFORMATION
  Report Type: Report from Study
  Country: US (occurrence: US)
  Receive Date: 20140305
  Receipt Date: 20140305
  Transmission Date: 20141002
  Serious: Yes (Hospitalization)
  Sender: FDA-Public Use
  Company Number: US-ABBVIE-13P-163-1120654-00

PATIENT
  Age: 58 Year
  Sex: Female
  Weight: 81.72 kg

DRUGS (8)
  1. HUMIRA [Suspect]
     Indication: PSORIATIC ARTHROPATHY
     Dates: start: 201207
  2. HUMIRA [Suspect]
  3. METHOTREXATE [Concomitant]
     Indication: PSORIATIC ARTHROPATHY
  4. HYDROCODONE [Concomitant]
     Indication: PAIN
     Dosage: PRN
  5. CYMBALTA [Concomitant]
     Indication: DEPRESSION
  6. CELEBREX [Concomitant]
     Indication: PAIN
  7. XANAX [Concomitant]
     Indication: ANXIETY
  8. FOLIC ACID [Concomitant]
     Indication: VITAMIN SUPPLEMENTATION

REACTIONS (2)
  - Fall [Recovering/Resolving]
  - Upper limb fracture [Recovering/Resolving]
